FAERS Safety Report 6433112-1 (Version None)
Quarter: 2009Q4

REPORT INFORMATION
  Report Type: 
  Country: None (occurrence: None)
  Receive Date: 20091109
  Receipt Date: 20091030
  Transmission Date: 20100525
  Serious: Yes (Other)
  Sender: FDA-Public Use
  Company Number: US-ASTRAZENECA-2009SE24733

PATIENT
  Age: 74 Year
  Sex: Male

DRUGS (5)
  1. ONGLYZA [Suspect]
     Route: 048
  2. LISINOPRIL [Suspect]
     Route: 048
  3. METFORMIN HCL [Concomitant]
  4. PRANDIN [Concomitant]
  5. PRAVASTATIN SODIUM [Concomitant]

REACTIONS (3)
  - DERMATITIS [None]
  - EYE SWELLING [None]
  - SWELLING FACE [None]
